FAERS Safety Report 22596359 (Version 1)
Quarter: 2023Q2

REPORT INFORMATION
  Report Type: Other
  Country: None (occurrence: US)
  Receive Date: 20230613
  Receipt Date: 20230613
  Transmission Date: 20230721
  Serious: Yes (Hospitalization)
  Sender: FDA-Public Use
  Company Number: US-Mary Kay Inc.-2142659

PATIENT
  Age: 61 Year
  Sex: Female

DRUGS (1)
  1. MARY KAY TIMEWISE REPAIR VOLU-FIRM DAY CREAM BROAD SPECTRUM SPF 30 [Suspect]
     Active Substance: AVOBENZONE\HOMOSALATE\OCTISALATE\OCTOCRYLENE\OXYBENZONE
     Indication: Prophylaxis against solar radiation
     Route: 061
     Dates: start: 20230528, end: 20230528

REACTIONS (3)
  - Erythema [Recovering/Resolving]
  - Swelling face [None]
  - Feeling hot [None]

NARRATIVE: CASE EVENT DATE: 20230528
